FAERS Safety Report 6161718-6 (Version None)
Quarter: 2009Q2

REPORT INFORMATION
  Report Type: 
  Country: None (occurrence: None)
  Receive Date: 20090417
  Receipt Date: 20090401
  Transmission Date: 20091009
  Serious: Yes (Other)
  Sender: FDA-Public Use
  Company Number: ALA_00270_2009

PATIENT
  Sex: Female
  Weight: 68.0396 kg

DRUGS (1)
  1. TRILYTE [Suspect]
     Indication: COLONOSCOPY
     Dosage: DRANK 1 8OZ. GLASS OUT OF A 4 LITER CONTAINER ORAL
     Route: 048
     Dates: start: 20090310, end: 20090310

REACTIONS (10)
  - BLOOD CHLORIDE INCREASED [None]
  - BLOOD GLUCOSE INCREASED [None]
  - CARBON DIOXIDE DECREASED [None]
  - GRANULOCYTE COUNT INCREASED [None]
  - HEADACHE [None]
  - HYPERSENSITIVITY [None]
  - LYMPHOCYTE COUNT DECREASED [None]
  - SHOCK [None]
  - VISION BLURRED [None]
  - WHITE BLOOD CELL COUNT INCREASED [None]
